FAERS Safety Report 18095101 (Version 1)
Quarter: 2020Q3

REPORT INFORMATION
  Report Type: Report from Study
  Country: GB (occurrence: GB)
  Receive Date: 20200730
  Receipt Date: 20200730
  Transmission Date: 20201103
  Serious: Yes (Hospitalization)
  Sender: FDA-Public Use
  Company Number: GB-JNJFOC-20200734387

PATIENT
  Sex: Female
  Weight: 74.4 kg

DRUGS (73)
  1. STELARA [Suspect]
     Active Substance: USTEKINUMAB
     Indication: PSORIASIS
     Route: 058
     Dates: start: 20151119, end: 20180425
  2. TELMISARTAN. [Concomitant]
     Active Substance: TELMISARTAN
     Dates: start: 20030918
  3. FEXOFENADINE [Concomitant]
     Active Substance: FEXOFENADINE HYDROCHLORIDE
     Dates: start: 20170628
  4. TRIAMCINOLONE [Concomitant]
     Active Substance: TRIAMCINOLONE
     Dates: start: 20170725, end: 20170725
  5. ACTRAPID [Concomitant]
     Active Substance: INSULIN HUMAN
     Dates: start: 20171013, end: 20171018
  6. METHYLPREDNISOLONE. [Concomitant]
     Active Substance: METHYLPREDNISOLONE
     Dates: start: 20180703, end: 20180705
  7. FUROSEMIDE. [Concomitant]
     Active Substance: FUROSEMIDE
     Dates: start: 20190401
  8. DULOXETINE. [Concomitant]
     Active Substance: DULOXETINE
     Dates: start: 20180220, end: 20180601
  9. DEPO?MEDRONE [Concomitant]
     Active Substance: METHYLPREDNISOLONE
     Dates: start: 20190122, end: 20190122
  10. FONDAPARINUX [Concomitant]
     Active Substance: FONDAPARINUX
     Dates: start: 20180601, end: 20180601
  11. TICAGRELOR. [Concomitant]
     Active Substance: TICAGRELOR
     Dates: start: 20180601, end: 20180921
  12. PENICILLIN                         /00000901/ [Concomitant]
     Active Substance: PENICILLIN G
     Dates: start: 20190929, end: 20191003
  13. SIMVASTATIN. [Concomitant]
     Active Substance: SIMVASTATIN
     Dates: start: 20030512
  14. PREGABALIN. [Concomitant]
     Active Substance: PREGABALIN
     Dates: start: 20151203
  15. BUTRANS [Concomitant]
     Active Substance: BUPRENORPHINE
     Dates: start: 20160725, end: 20170725
  16. SODIUM HYALURONATE [Concomitant]
     Active Substance: HYALURONATE SODIUM
     Route: 065
     Dates: start: 20170628
  17. TRIAMCINOLONE [Concomitant]
     Active Substance: TRIAMCINOLONE
     Dates: start: 20171025, end: 20171025
  18. AMITRIPTYLINE [Concomitant]
     Active Substance: AMITRIPTYLINE
     Dates: start: 20171128
  19. HYDROCORTISONE. [Concomitant]
     Active Substance: HYDROCORTISONE
     Dates: start: 20180220, end: 20180301
  20. TELMISARTAN. [Concomitant]
     Active Substance: TELMISARTAN
     Dates: start: 20150101
  21. ATORVASTATIN [Concomitant]
     Active Substance: ATORVASTATIN
     Dates: start: 20170628
  22. OXYCODONE [Concomitant]
     Active Substance: OXYCODONE
     Dates: start: 20170725
  23. FUROSEMIDE. [Concomitant]
     Active Substance: FUROSEMIDE
     Dates: start: 20180201, end: 20180301
  24. DULOXETINE. [Concomitant]
     Active Substance: DULOXETINE
     Dates: start: 20181023, end: 20190122
  25. TEICOPLANIN [Concomitant]
     Active Substance: TEICOPLANIN
     Dates: start: 20180221, end: 20180321
  26. DILTIAZEM. [Concomitant]
     Active Substance: DILTIAZEM
     Dates: start: 20180606, end: 20181123
  27. MEROPENEM. [Concomitant]
     Active Substance: MEROPENEM
     Dates: start: 20180717, end: 20180723
  28. RAMIPRIL. [Concomitant]
     Active Substance: RAMIPRIL
     Dates: start: 20181023, end: 20190525
  29. DOMPERIDONE [Concomitant]
     Active Substance: DOMPERIDONE
     Dates: start: 20190122
  30. LORAZEPAM. [Concomitant]
     Active Substance: LORAZEPAM
     Dates: start: 20190919
  31. SIMVASTATIN. [Concomitant]
     Active Substance: SIMVASTATIN
     Dates: start: 20050101
  32. PREDNISOLONE. [Concomitant]
     Active Substance: PREDNISOLONE
     Dates: start: 20090101
  33. HUMULIN NOS [Concomitant]
     Active Substance: INSULIN HUMAN
     Dates: start: 20170209
  34. LAXIDO [Concomitant]
     Active Substance: POLYETHYLENE GLYCOL 3350\POTASSIUM CHLORIDE\SODIUM BICARBONATE\SODIUM CHLORIDE
     Dates: start: 20171013, end: 20171020
  35. TEICOPLANIN [Concomitant]
     Active Substance: TEICOPLANIN
     Dates: start: 20190922, end: 20190926
  36. DIAZEPAM. [Concomitant]
     Active Substance: DIAZEPAM
     Dates: start: 20180601, end: 20180601
  37. CHOLECALCIFEROL [Concomitant]
     Active Substance: CHOLECALCIFEROL
     Dates: start: 20190211
  38. IRON [Concomitant]
     Active Substance: IRON
     Route: 042
     Dates: start: 20190710, end: 20190710
  39. GLYCERYL TRINITRATE [Concomitant]
     Active Substance: NITROGLYCERIN
     Dates: start: 20190920
  40. ZOLEDRONIC ACID [Concomitant]
     Active Substance: ZOLEDRONIC ACID
     Dates: start: 20170327
  41. PARACETAMOL [Concomitant]
     Active Substance: ACETAMINOPHEN
     Dates: start: 20170628
  42. DALTEPARIN [Concomitant]
     Active Substance: DALTEPARIN
     Dates: start: 20171011, end: 20171020
  43. TEICOPLANIN [Concomitant]
     Active Substance: TEICOPLANIN
     Dates: start: 20190929, end: 20191003
  44. DOCUSATE SODIUM. [Concomitant]
     Active Substance: DOCUSATE SODIUM
     Dates: start: 20180417
  45. FOLIC ACID. [Concomitant]
     Active Substance: FOLIC ACID
     Dates: start: 20180417
  46. CEFTRIAXONE. [Concomitant]
     Active Substance: CEFTRIAXONE
     Dates: start: 20180724, end: 20180806
  47. IVABRADINE [Concomitant]
     Active Substance: IVABRADINE
     Dates: start: 20190919, end: 20190919
  48. LANSOPRAZOLE. [Concomitant]
     Active Substance: LANSOPRAZOLE
     Dates: start: 20120701
  49. ORAMORPH [Concomitant]
     Active Substance: MORPHINE SULFATE
     Dates: start: 20150901
  50. DENOSUMAB [Concomitant]
     Active Substance: DENOSUMAB
     Dates: start: 20160511
  51. BISOPROLOL [Concomitant]
     Active Substance: BISOPROLOL
     Dates: start: 20180417
  52. APREMILAST [Concomitant]
     Active Substance: APREMILAST
     Dates: start: 20180926, end: 20191012
  53. ADCAL                              /00056901/ [Concomitant]
     Active Substance: CARBAZOCHROME
     Dates: start: 20190211
  54. METOPROLOL. [Concomitant]
     Active Substance: METOPROLOL
     Dates: start: 20190920
  55. METOCLOPRAMIDE. [Concomitant]
     Active Substance: METOCLOPRAMIDE
     Dates: start: 20190922
  56. OMEPRAZOLE. [Concomitant]
     Active Substance: OMEPRAZOLE
     Dates: start: 20020801
  57. TRAMADOL. [Concomitant]
     Active Substance: TRAMADOL
     Dates: start: 20070101, end: 20170725
  58. GLICLAZIDE [Concomitant]
     Active Substance: GLICLAZIDE
     Dates: start: 20180903
  59. MINOXIDIL. [Concomitant]
     Active Substance: MINOXIDIL
     Dates: start: 20170309
  60. DALTEPARIN [Concomitant]
     Active Substance: DALTEPARIN
     Dates: start: 20170818, end: 20170824
  61. NITROFURANTOIN. [Concomitant]
     Active Substance: NITROFURANTOIN
     Dates: start: 20171202, end: 20171204
  62. METHYLPREDNISOLONE. [Concomitant]
     Active Substance: METHYLPREDNISOLONE
     Dates: start: 20171202, end: 20171204
  63. MACROGOL [Concomitant]
     Active Substance: POLYETHYLENE GLYCOLS
     Dates: start: 20180116
  64. INSULIN [Concomitant]
     Active Substance: INSULIN NOS
     Dates: start: 20190823
  65. STELARA [Suspect]
     Active Substance: USTEKINUMAB
  66. GLICLAZIDE [Concomitant]
     Active Substance: GLICLAZIDE
     Dates: start: 20080101, end: 20180101
  67. VITAMIN D                          /00107901/ [Concomitant]
     Active Substance: ERGOCALCIFEROL
     Dates: start: 20160524
  68. TRIAMCINOLONE [Concomitant]
     Active Substance: TRIAMCINOLONE
     Dates: start: 20171011, end: 20171111
  69. LEVOFLOXACIN. [Concomitant]
     Active Substance: LEVOFLOXACIN
     Dates: start: 20180221, end: 20180321
  70. DEPO?MEDRONE [Concomitant]
     Active Substance: METHYLPREDNISOLONE
     Dates: start: 20180509, end: 20180509
  71. BENDROFLUMETHIAZIDE [Concomitant]
     Active Substance: BENDROFLUMETHIAZIDE
     Dates: start: 20180724, end: 20181123
  72. GABAPENTIN. [Concomitant]
     Active Substance: GABAPENTIN
     Dates: start: 20180724
  73. COLCHICINE. [Concomitant]
     Active Substance: COLCHICINE
     Dates: start: 20190912, end: 20190921

REACTIONS (1)
  - Viral rash [Recovered/Resolved]

NARRATIVE: CASE EVENT DATE: 20170628
